FAERS Safety Report 6528964-0 (Version None)
Quarter: 2010Q1

REPORT INFORMATION
  Report Type: 
  Country: None (occurrence: None)
  Receive Date: 20100106
  Receipt Date: 20091230
  Transmission Date: 20100710
  Serious: Yes (Hospitalization)
  Sender: FDA-Public Use
  Company Number: FR-MERCK-0912FRA00085

PATIENT
  Age: 60 Year
  Sex: Male

DRUGS (9)
  1. JANUVIA [Suspect]
     Indication: TYPE 2 DIABETES MELLITUS
     Route: 048
     Dates: start: 20091006
  2. IRBESARTAN [Suspect]
     Indication: HYPERTENSION
     Route: 048
     Dates: start: 20091006, end: 20091120
  3. PRAVASTATIN SODIUM [Suspect]
     Indication: HYPERCHOLESTEROLAEMIA
     Route: 048
     Dates: start: 20090301, end: 20091120
  4. ROXITHROMYCIN [Suspect]
     Indication: BRONCHITIS
     Route: 048
     Dates: start: 20091113, end: 20091121
  5. ACETYLCYSTEINE [Suspect]
     Indication: BRONCHITIS
     Route: 048
     Dates: start: 20091113, end: 20091121
  6. SAW PALMETTO [Concomitant]
     Route: 065
     Dates: start: 20090301, end: 20091120
  7. ALFUZOSIN HYDROCHLORIDE [Concomitant]
     Route: 048
     Dates: start: 20090301
  8. POLYETHYLENE GLYCOL 3350 AND POTASSIUM CHLORIDE AND SODIUM BICARBONATE [Concomitant]
     Route: 065
     Dates: start: 20090301
  9. DIOSMIN [Concomitant]
     Route: 065
     Dates: start: 20090301

REACTIONS (2)
  - CHOLESTASIS [None]
  - CYTOLYTIC HEPATITIS [None]
